FAERS Safety Report 8003977-0 (Version None)
Quarter: 2011Q4

REPORT INFORMATION
  Report Type: 
  Country: None (occurrence: None)
  Receive Date: 20111222
  Receipt Date: 20111206
  Transmission Date: 20120403
  Serious: Yes (Other)
  Sender: FDA-Public Use
  Company Number: DE-ROCHE-1020505

PATIENT

DRUGS (1)
  1. MYCOPHENOLATE MOFETIL (CELLCEPT) [Suspect]
     Indication: OCULAR PEMPHIGOID

REACTIONS (3)
  - PNEUMONIA [None]
  - CEREBROVASCULAR ACCIDENT [None]
  - HERPES ZOSTER [None]
